FAERS Safety Report 8596034-6 (Version None)
Quarter: 2012Q3

REPORT INFORMATION
  Report Type: 
  Country: None (occurrence: None)
  Receive Date: 20120807
  Receipt Date: 20120807
  Transmission Date: 20120928
  Serious: Yes (Disabling)
  Sender: FDA-Public Use
  Company Number: None

PATIENT
  Sex: Male
  Weight: 61.6892 kg

DRUGS (4)
  1. OPANA [Suspect]
     Indication: PAIN IN EXTREMITY
     Dosage: 40 MG 2 X DAILY ORAL PILL
     Route: 048
  2. OPANA [Suspect]
     Indication: ARTHRALGIA
     Dosage: 40 MG 2 X DAILY ORAL PILL
     Route: 048
  3. OPANA [Suspect]
     Indication: BACK PAIN
     Dosage: 40 MG 2 X DAILY ORAL PILL
     Route: 048
  4. OPANA [Suspect]
     Dosage: 20 MG 2X DAILY ORAL PILL
     Route: 048

REACTIONS (5)
  - MELAENA [None]
  - RENAL PAIN [None]
  - DRUG EFFECT DECREASED [None]
  - CONSTIPATION [None]
  - PRODUCT SUBSTITUTION ISSUE [None]
